FAERS Safety Report 9703924 (Version 1)
Quarter: 2013Q4

REPORT INFORMATION
  Report Type: Report from Study
  Country: JP (occurrence: JP)
  Receive Date: 20131122
  Receipt Date: 20131122
  Transmission Date: 20140711
  Serious: Yes (Hospitalization)
  Sender: FDA-Public Use
  Company Number: JP-ROCHE-1302807

PATIENT
  Age: 69 Year
  Sex: Male

DRUGS (8)
  1. METHOXY POLYETHYLENE GLYCOL-EPOETIN BETA [Suspect]
     Indication: NEPHROGENIC ANAEMIA
     Route: 058
     Dates: start: 20130228, end: 20130228
  2. METHOXY POLYETHYLENE GLYCOL-EPOETIN BETA [Suspect]
     Indication: NEPHROGENIC ANAEMIA
     Route: 058
     Dates: start: 20130328, end: 20130606
  3. WARFARIN [Concomitant]
     Route: 048
  4. ARTIST [Concomitant]
     Route: 048
  5. MEXITIL [Concomitant]
     Route: 048
  6. ZYLORIC [Concomitant]
     Route: 048
  7. DIART [Concomitant]
     Route: 048
  8. THYRADIN [Concomitant]
     Route: 048

REACTIONS (1)
  - Subarachnoid haemorrhage [Unknown]
